FAERS Safety Report 6590330-X (Version None)
Quarter: 2010Q1

REPORT INFORMATION
  Report Type: 
  Country: None (occurrence: None)
  Receive Date: 20100219
  Receipt Date: 20100208
  Transmission Date: 20100710
  Serious: Yes (Other)
  Sender: FDA-Public Use
  Company Number: US-JNJFOC-20100108110

PATIENT
  Sex: Male
  Weight: 122.93 kg

DRUGS (2)
  1. REMICADE [Suspect]
     Indication: CROHN'S DISEASE
     Dosage: 7 INFUSIONS ON UNSPECIFIED DATES
     Route: 042
  2. MULTI-VITAMINS [Concomitant]
     Indication: MEDICAL DIET

REACTIONS (1)
  - GLOMERULONEPHRITIS MINIMAL LESION [None]
